FAERS Safety Report 5491104-3 (Version None)
Quarter: 2007Q4

REPORT INFORMATION
  Report Type: 
  Country: None (occurrence: None)
  Receive Date: 20071019
  Receipt Date: 20071010
  Transmission Date: 20080405
  Serious: Yes (Hospitalization, Other)
  Sender: FDA-Public Use
  Company Number: US-PFIZER INC-2007063790

PATIENT
  Sex: Female
  Weight: 45.4 kg

DRUGS (19)
  1. LIPITOR [Suspect]
     Indication: BLOOD CHOLESTEROL
     Dates: start: 20030101, end: 20070101
  2. LIPITOR [Suspect]
     Indication: AORTIC ANEURYSM
  3. CITALOPRAM HYDROBROMIDE [Concomitant]
  4. OMEPRAZOLE [Concomitant]
  5. GABAPENTIN [Concomitant]
     Indication: NEURALGIA
  6. HYDROXYZINE [Concomitant]
     Indication: PHARYNGOLARYNGEAL PAIN
  7. LOTREL [Concomitant]
     Indication: HYPERTENSION
  8. ZYLOPRIM [Concomitant]
  9. TIZANIDINE HCL [Concomitant]
  10. ETODOLAC [Concomitant]
  11. ZOLPIDEM TARTRATE [Concomitant]
  12. CRESTOR [Concomitant]
  13. XOPENEX [Concomitant]
     Indication: RESPIRATORY THERAPY
  14. ASPIRIN [Concomitant]
  15. SPIRIVA [Concomitant]
  16. ADVAIR DISKUS 100/50 [Concomitant]
     Indication: RESPIRATORY THERAPY
  17. CILOSTAZOL [Concomitant]
  18. DARVOCET [Concomitant]
     Indication: NEURALGIA
  19. OXYGEN [Concomitant]

REACTIONS (3)
  - AORTIC ANEURYSM [None]
  - MUSCLE ATROPHY [None]
  - PAIN [None]
